FAERS Safety Report 8056524-1 (Version None)
Quarter: 2012Q1

REPORT INFORMATION
  Report Type: 
  Country: None (occurrence: None)
  Receive Date: 20120119
  Receipt Date: 20120116
  Transmission Date: 20120608
  Serious: Yes (Hospitalization)
  Sender: FDA-Public Use
  Company Number: JP-BRACCO-005578

PATIENT
  Age: 36 Year
  Sex: Female

DRUGS (1)
  1. PROHANCE [Suspect]
     Indication: DIAGNOSTIC PROCEDURE
     Route: 042
     Dates: start: 20120113, end: 20120113

REACTIONS (3)
  - GENERALISED OEDEMA [None]
  - SHOCK [None]
  - ABDOMINAL PAIN [None]
